FAERS Safety Report 7700439-2 (Version None)
Quarter: 2011Q3

REPORT INFORMATION
  Report Type: 
  Country: None (occurrence: None)
  Receive Date: 20110822
  Receipt Date: 20110808
  Transmission Date: 20111222
  Serious: Yes (Life-Threatening, Hospitalization)
  Sender: FDA-Public Use
  Company Number: JP-CELGENEUS-087-21880-11033224

PATIENT
  Sex: Female

DRUGS (19)
  1. METHYLPREDNISOLONE SODIUM SUCCINATE [Concomitant]
     Dosage: 125 MILLIGRAM
     Route: 041
     Dates: start: 20101029, end: 20101031
  2. HALIZON [Concomitant]
     Dosage: 300 MILLIGRAM
     Route: 048
     Dates: start: 20101015, end: 20101025
  3. REVLIMID [Suspect]
     Indication: MULTIPLE MYELOMA
     Dosage: 10 MILLIGRAM
     Route: 048
     Dates: start: 20101016, end: 20101025
  4. GABAPENTIN [Concomitant]
     Indication: NEUROPATHY PERIPHERAL
     Dosage: 600 MILLIGRAM
     Route: 048
     Dates: start: 20101015, end: 20101025
  5. LEVEMIR [Concomitant]
     Indication: DIABETES MELLITUS
     Dosage: 12U
     Route: 058
     Dates: start: 20101022, end: 20101101
  6. DEXAMETHASONE [Concomitant]
     Indication: MULTIPLE MYELOMA
     Dosage: .5 MILLIGRAM
     Route: 048
     Dates: start: 20101015, end: 20101025
  7. BIOFERMIN [Concomitant]
     Indication: PROPHYLAXIS
     Dosage: 36 MILLIGRAM
     Route: 048
     Dates: start: 20101015, end: 20101025
  8. ITRACONAZOLE [Concomitant]
     Indication: ASPERGILLOSIS
     Dosage: 200 MILLIGRAM
     Route: 048
     Dates: start: 20101015, end: 20101025
  9. HUMULIN R [Concomitant]
     Indication: DIABETES MELLITUS
     Dosage: 10-30U
     Route: 058
     Dates: start: 20101014, end: 20101101
  10. FUROSEMIDE [Concomitant]
     Dosage: 40 MILLIGRAM
     Route: 041
     Dates: start: 20101021, end: 20101022
  11. MORPHINE HCL ELIXIR [Concomitant]
     Dosage: 10 MILLIGRAM
     Route: 041
     Dates: start: 20101101, end: 20101103
  12. METHYLPREDNISOLONE SODIUM SUCCINATE [Concomitant]
     Indication: MULTIPLE MYELOMA
     Dosage: 250 MILLIGRAM
     Route: 041
     Dates: start: 20101025, end: 20101028
  13. PREDNISOLONE [Concomitant]
     Indication: MULTIPLE MYELOMA
     Dosage: 30 MILLIGRAM
     Route: 041
     Dates: start: 20101101, end: 20101102
  14. GAMOFA [Concomitant]
     Indication: PROPHYLAXIS
     Dosage: 40 MILLIGRAM
     Route: 048
     Dates: start: 20101015, end: 20101025
  15. VENECTOMIN [Concomitant]
     Dosage: 400 MILLIGRAM
     Route: 041
     Dates: start: 20101021, end: 20101022
  16. JUZEN-TAIHO-TO [Concomitant]
     Dosage: 7.5 GRAM
     Route: 048
     Dates: start: 20101015, end: 20101025
  17. SEFIROM [Concomitant]
     Indication: PROPHYLAXIS
     Dosage: 4 GRAM
     Route: 041
     Dates: start: 20101014, end: 20101014
  18. ASPIRIN [Concomitant]
     Indication: PROPHYLAXIS
     Dosage: 100 MILLIGRAM
     Route: 048
     Dates: start: 20101015, end: 20101025
  19. FUNGUARD [Concomitant]
     Indication: ASPERGILLOSIS
     Dosage: 150 MILLIGRAM
     Route: 041
     Dates: start: 20101014, end: 20101024

REACTIONS (5)
  - PNEUMONIA [None]
  - WHITE BLOOD CELL COUNT DECREASED [None]
  - CONSTIPATION [None]
  - ABDOMINAL DISTENSION [None]
  - CYTOMEGALOVIRUS VIRAEMIA [None]
